FAERS Safety Report 15441287 (Version 1)
Quarter: 2018Q3

REPORT INFORMATION
  Report Type: Spontaneous
  Country: US (occurrence: US)
  Receive Date: 20180928
  Receipt Date: 20180928
  Transmission Date: 20181010
  Serious: No
  Sender: FDA-Public Use
  Company Number: US-VERTEX PHARMACEUTICALS-2018-006946

PATIENT
  Age: 56 Year
  Sex: Male

DRUGS (14)
  1. SYMDEKO [Suspect]
     Active Substance: IVACAFTOR\TEZACAFTOR
     Indication: CYSTIC FIBROSIS
     Dosage: 100MG TEZACAFTOR/150MG IVACAFTOR AM; 150MG IVACAFTOR PM
     Route: 048
     Dates: start: 20180918
  2. AZELASTINE. [Concomitant]
     Active Substance: AZELASTINE HYDROCHLORIDE
  3. BUPROPION HCL [Concomitant]
     Active Substance: BUPROPION HYDROCHLORIDE
  4. ESZOPICLONE. [Concomitant]
     Active Substance: ESZOPICLONE
  5. MONTELUKAST [Concomitant]
     Active Substance: MONTELUKAST SODIUM
  6. ARMODAFINIL. [Concomitant]
     Active Substance: ARMODAFINIL
     Dosage: UNK
  7. DULOXETINE. [Concomitant]
     Active Substance: DULOXETINE
  8. GABAPENTIN. [Concomitant]
     Active Substance: GABAPENTIN
  9. METOPROL XL [Concomitant]
  10. FLUTICASONE. [Concomitant]
     Active Substance: FLUTICASONE
  11. HYPERSAL [Concomitant]
  12. ESOMEPRAZOL MAGNESIO [Concomitant]
  13. TESTOSTERONE CYPIONATE. [Concomitant]
     Active Substance: TESTOSTERONE CYPIONATE
  14. ULORIC [Concomitant]
     Active Substance: FEBUXOSTAT

REACTIONS (2)
  - Heart rate increased [Not Recovered/Not Resolved]
  - Feeling hot [Not Recovered/Not Resolved]

NARRATIVE: CASE EVENT DATE: 20180918
